FAERS Safety Report 4710827-4 (Version None)
Quarter: 2005Q3

REPORT INFORMATION
  Report Type: 
  Country: None (occurrence: None)
  Receive Date: 20050706
  Receipt Date: 20050706
  Transmission Date: 20060218
  Serious: Yes (Other)
  Sender: FDA-Public Use
  Company Number: None

PATIENT
  Age: 73 Year
  Sex: Female

DRUGS (7)
  1. CIPROFLOXACIN HCL [Suspect]
     Indication: ARTHROPOD BITE
     Dosage: 500 MG BID
     Dates: start: 20050503, end: 20050504
  2. ATENOLOL [Concomitant]
  3. POTASSIUM CHLORIDE [Concomitant]
  4. ENALOPRIL [Concomitant]
  5. LEVOTHROXINE [Concomitant]
  6. FUROSEMIDE [Concomitant]
  7. ZOCOR [Concomitant]

REACTIONS (2)
  - FEELING HOT [None]
  - RASH ERYTHEMATOUS [None]
